FAERS Safety Report 15130869 (Version 1)
Quarter: 2018Q3

REPORT INFORMATION
  Report Type: Spontaneous
  Country: SE (occurrence: SE)
  Receive Date: 20180711
  Receipt Date: 20180711
  Transmission Date: 20181010
  Serious: Yes (Other)
  Sender: FDA-Public Use
  Company Number: SE-009507513-1807SWE003050

PATIENT
  Age: 83 Year
  Sex: Female

DRUGS (8)
  1. OVESTERIN [Concomitant]
     Active Substance: ESTRIOL
     Dates: start: 20161222
  2. ALLOPURINOL. [Concomitant]
     Active Substance: ALLOPURINOL
     Dates: start: 20170202
  3. ALENDRONATE SODIUM. [Suspect]
     Active Substance: ALENDRONATE SODIUM
     Indication: OSTEOPOROSIS
     Dosage: 70 1 (ONE) TIME PER WEEK
     Route: 048
     Dates: start: 20180227
  4. ATORVASTATIN [Concomitant]
     Active Substance: ATORVASTATIN
     Dates: start: 20170202
  5. VALSARTAN. [Concomitant]
     Active Substance: VALSARTAN
     Dates: start: 20170810
  6. JANUVIA [Concomitant]
     Active Substance: SITAGLIPTIN PHOSPHATE
     Dates: start: 20170214
  7. KALCIPOS D [Concomitant]
     Active Substance: CALCIUM CARBONATE\CHOLECALCIFEROL
     Dates: start: 20180227
  8. METOPROLOL. [Concomitant]
     Active Substance: METOPROLOL
     Dates: start: 20170316

REACTIONS (1)
  - Muscular weakness [Recovered/Resolved]

NARRATIVE: CASE EVENT DATE: 2018
